FAERS Safety Report 15566621 (Version 2)
Quarter: 2019Q1

REPORT INFORMATION
  Report Type: Report from Study
  Country: DE (occurrence: DE)
  Receive Date: 20181030
  Receipt Date: 20190112
  Transmission Date: 20190417
  Serious: Yes (Hospitalization)
  Sender: FDA-Public Use
  Company Number: DE-TEVA-2018-DE-970112

PATIENT
  Age: 32 Year
  Sex: Male
  Weight: 82 kg

DRUGS (2)
  1. PEG-INTERFERON ALFA 2A (RO 25-8310) [Suspect]
     Active Substance: PEGINTERFERON ALFA-2A
     Indication: CHRONIC HEPATITIS C
     Route: 058
     Dates: start: 20031017
  2. RIBAVIRIN. [Suspect]
     Active Substance: RIBAVIRIN
     Indication: CHRONIC HEPATITIS C
     Dosage: 800 MILLIGRAM DAILY;
     Route: 048
     Dates: start: 20031017

REACTIONS (10)
  - Periorbital haematoma [Recovered/Resolved]
  - Cerebral haemorrhage [Unknown]
  - Disturbance in attention [Unknown]
  - Concussion [Recovered/Resolved]
  - Lower limb fracture [Unknown]
  - Road traffic accident [Unknown]
  - Haematoma [Unknown]
  - Lower limb fracture [Recovering/Resolving]
  - Ear injury [Recovered/Resolved]
  - Contusion [Recovered/Resolved]

NARRATIVE: CASE EVENT DATE: 20031201
